FAERS Safety Report 4730375-5 (Version None)
Quarter: 2005Q3

REPORT INFORMATION
  Report Type: 
  Country: None (occurrence: None)
  Receive Date: 20050801
  Receipt Date: 20050719
  Transmission Date: 20060218
  Serious: Yes (Congenital Anomaly)
  Sender: FDA-Public Use
  Company Number: US-GILEAD-2005-0008555

PATIENT
  Sex: Male

DRUGS (8)
  1. VIREAD [Suspect]
     Indication: HIV INFECTION
     Route: 064
     Dates: start: 20040401, end: 20050429
  2. ATAZANAVIR [Concomitant]
     Indication: HIV INFECTION
     Route: 064
     Dates: start: 20040401, end: 20041102
  3. EPIVIR [Concomitant]
     Indication: HIV INFECTION
     Route: 064
     Dates: start: 20040401, end: 20041101
  4. COMBIVIR [Concomitant]
     Indication: HIV INFECTION
     Route: 064
     Dates: start: 20041102, end: 20050429
  5. NORVIR [Concomitant]
     Indication: HIV INFECTION
     Route: 064
     Dates: start: 20040401, end: 20041101
  6. ZIDOVUDINE [Concomitant]
     Indication: HIV INFECTION
     Route: 064
     Dates: start: 20050425, end: 20050429
  7. KALETRA [Concomitant]
     Indication: HIV INFECTION
     Route: 064
     Dates: start: 20041102, end: 20050302
  8. KALETRA [Concomitant]
     Route: 064
     Dates: start: 20050302, end: 20050429

REACTIONS (2)
  - CONGENITAL URINARY TRACT OBSTRUCTION [None]
  - DRUG EXPOSURE DURING PREGNANCY [None]
